FAERS Safety Report 15228254 (Version 2)
Quarter: 2018Q3

REPORT INFORMATION
  Report Type: Report from Study
  Country: US (occurrence: US)
  Receive Date: 20180801
  Receipt Date: 20180803
  Transmission Date: 20181010
  Serious: Yes (Other)
  Sender: FDA-Public Use
  Company Number: US-ASTRAZENECA-2017SE75999

PATIENT
  Age: 16644 Day
  Sex: Female
  Weight: 39.9 kg

DRUGS (5)
  1. TAGRISSO [Suspect]
     Active Substance: OSIMERTINIB
     Indication: NON-SMALL CELL LUNG CANCER STAGE IV
     Route: 048
     Dates: start: 20170721
  2. BACTRIM [Concomitant]
     Active Substance: SULFAMETHOXAZOLE\TRIMETHOPRIM
  3. TAGRISSO [Suspect]
     Active Substance: OSIMERTINIB
     Indication: NON-SMALL CELL LUNG CANCER STAGE IV
     Route: 048
     Dates: end: 20170725
  4. TAGRISSO [Suspect]
     Active Substance: OSIMERTINIB
     Indication: NON-SMALL CELL LUNG CANCER STAGE IV
     Route: 048
     Dates: start: 201710
  5. EPIPEN [Concomitant]
     Active Substance: EPINEPHRINE

REACTIONS (12)
  - Mass [Unknown]
  - Drug dose omission [Unknown]
  - Acne [Unknown]
  - Headache [Unknown]
  - Localised infection [Unknown]
  - Cough [Unknown]
  - Body temperature decreased [Unknown]
  - Nodule [Unknown]
  - Pain [Unknown]
  - Urticaria [Recovered/Resolved]
  - Nasal disorder [Unknown]
  - Infection [Unknown]

NARRATIVE: CASE EVENT DATE: 20170725
